FAERS Safety Report 9826925 (Version 1)
Quarter: 2013Q4

REPORT INFORMATION
  Report Type: Spontaneous
  Country: US (occurrence: None)
  Receive Date: 20131112
  Receipt Date: 20131112
  Transmission Date: 20140711
  Serious: No
  Sender: FDA-Public Use
  Company Number: US-012888

PATIENT
  Age: 55 Year
  Sex: Female
  Weight: 52.16 kg

DRUGS (4)
  1. PICO-SALAX [Suspect]
     Indication: BOWEL PREPARATION
     Dates: start: 20130827, end: 20130827
  2. PROZAC [Concomitant]
  3. KLONOPIN [Concomitant]
  4. FOLIC ACID [Concomitant]

REACTIONS (2)
  - Product formulation issue [None]
  - No adverse event [None]
